FAERS Safety Report 24570805 (Version 1)
Quarter: 2024Q4

REPORT INFORMATION
  Report Type: Spontaneous
  Country: US (occurrence: US)
  Receive Date: 20241101
  Receipt Date: 20241101
  Transmission Date: 20250114
  Serious: Yes (Death, Life-Threatening, Hospitalization)
  Sender: DR REDDYS
  Company Number: None

PATIENT
  Age: 47 Year
  Sex: Female

DRUGS (6)
  1. TACROLIMUS [Suspect]
     Active Substance: TACROLIMUS
     Indication: Immunosuppressant drug therapy
     Dosage: TACROLIMUS TITRATED TO A GOAL TACROLIMUS LEVEL OF 8-10
  2. RITUXIMAB [Suspect]
     Active Substance: RITUXIMAB
     Indication: Transplant rejection
     Dosage: BY POSTOPERATIVE DAY 42
  3. MYCOPHENOLIC ACID [Suspect]
     Active Substance: MYCOPHENOLIC ACID
     Indication: Immunosuppressant drug therapy
  4. PREDNISONE [Suspect]
     Active Substance: PREDNISONE
     Indication: Immunosuppressant drug therapy
     Route: 048
  5. METHYLPREDNISOLONE [Suspect]
     Active Substance: METHYLPREDNISOLONE
     Indication: Transplant rejection
     Dosage: HIGH-DOSE STEROIDS, TOTAL OF 3 DOSES FOLLOWED BY A SLOW STEROID TAPER
     Route: 042
  6. LAPINE T-LYMPHOCYTE IMMUNE GLOBULIN [Suspect]
     Active Substance: LAPINE T-LYMPHOCYTE IMMUNE GLOBULIN
     Indication: Transplant rejection
     Dosage: ON POSTOPERATIVE DAY 35

REACTIONS (11)
  - Septic shock [Fatal]
  - Multiple organ dysfunction syndrome [Fatal]
  - Spontaneous bacterial peritonitis [Unknown]
  - Klebsiella infection [Unknown]
  - Failure to thrive [Unknown]
  - Sepsis [Unknown]
  - Abdominal abscess [Unknown]
  - Disseminated intravascular coagulation [Unknown]
  - Oesophageal ulcer [Unknown]
  - Cytomegalovirus infection [Unknown]
  - Fungal infection [Unknown]
